FAERS Safety Report 4480613-1 (Version None)
Quarter: 2004Q4

REPORT INFORMATION
  Report Type: 
  Country: None (occurrence: None)
  Receive Date: 20041019
  Receipt Date: 20041007
  Transmission Date: 20050328
  Serious: Yes (Hospitalization)
  Sender: FDA-Public Use
  Company Number: 2004075335

PATIENT
  Age: 38 Year
  Sex: Female

DRUGS (3)
  1. SULPERAZON (CEFOPERAZONE, SULBACTAM) [Suspect]
     Indication: PYREXIA
     Dosage: 0.5 GRAM (1 D), INTRAVENOUS
     Route: 042
     Dates: start: 20041001
  2. LINCOMYCIN HYDROCHLORIDE MONOHYDRATE (LINCOMYCIN HYDROCHLORIDE MONOHYD [Suspect]
     Indication: PYREXIA
     Dosage: 600 MG (1 D), INTRAMUSCULAR
     Route: 030
     Dates: start: 20040929
  3. CLARITHROMYCIN [Concomitant]

REACTIONS (2)
  - RASH GENERALISED [None]
  - WHITE BLOOD CELL COUNT DECREASED [None]
